FAERS Safety Report 9256197 (Version 1)
Quarter: 2013Q2

REPORT INFORMATION
  Report Type: Spontaneous
  Country: US (occurrence: US)
  Receive Date: 20130425
  Receipt Date: 20130425
  Transmission Date: 20140414
  Serious: No
  Sender: FDA-Public Use
  Company Number: US-AMGEN-USASP2012069386

PATIENT
  Age: 88 Year
  Sex: Female

DRUGS (3)
  1. NEUPOGEN [Suspect]
     Indication: PRODUCT USED FOR UNKNOWN INDICATION
     Dosage: UNK
  2. NEULASTA [Suspect]
     Indication: PRODUCT USED FOR UNKNOWN INDICATION
     Dosage: UNK
  3. CHEMOTHERAPEUTICS [Concomitant]

REACTIONS (2)
  - Pain in extremity [Recovered/Resolved]
  - Abdominal pain [Recovered/Resolved]
